FAERS Safety Report 25573959 (Version 1)
Quarter: 2025Q3

REPORT INFORMATION
  Report Type: Spontaneous
  Country: JP (occurrence: JP)
  Receive Date: 20250717
  Receipt Date: 20250717
  Transmission Date: 20251020
  Serious: Yes (Life-Threatening, Hospitalization, Disabling, Other)
  Sender: ELI LILLY AND COMPANY
  Company Number: JP-ELI_LILLY_AND_COMPANY-JP202506005545

PATIENT
  Age: 62 Year
  Sex: Female
  Weight: 87.5 kg

DRUGS (9)
  1. OLUMIANT [Suspect]
     Active Substance: BARICITINIB
     Indication: Rheumatoid arthritis
     Dosage: 4 MG, DAILY
     Route: 048
     Dates: end: 20250605
  2. METHOTREXATE [Concomitant]
     Active Substance: METHOTREXATE
     Indication: Rheumatoid arthritis
     Dosage: 16 MG, WEEKLY (1/W)
     Route: 048
     Dates: end: 20250609
  3. METHOTREXATE [Concomitant]
     Active Substance: METHOTREXATE
     Dates: start: 20250705
  4. IGURATIMOD [Concomitant]
     Active Substance: IGURATIMOD
     Indication: Rheumatoid arthritis
     Dosage: 50 MG, DAILY
     Route: 048
     Dates: end: 20250609
  5. FOLIC ACID [Concomitant]
     Active Substance: FOLIC ACID
     Indication: Rheumatoid arthritis
     Dosage: 2 DOSAGE FORM, DAILY
     Route: 048
     Dates: end: 20250609
  6. METHYLCOBALAMIN [Concomitant]
     Active Substance: METHYLCOBALAMIN
     Dosage: 1.5 MG, DAILY
     Route: 048
     Dates: end: 20250609
  7. TOKISHAKUYAKUSAN [ALISMA PLANTAGO-AQUATICA SU [Concomitant]
     Dosage: 7.5 G, DAILY
     Route: 048
     Dates: end: 20250609
  8. OLOPATADINE [Concomitant]
     Active Substance: OLOPATADINE
     Indication: Pruritus
     Dosage: 10 MG, DAILY
     Route: 048
     Dates: start: 20250614, end: 20250619
  9. FEXOFENADINE HYDROCHLORIDE [Concomitant]
     Active Substance: FEXOFENADINE HYDROCHLORIDE
     Indication: Pruritus
     Dosage: 240 MG, DAILY
     Route: 048
     Dates: start: 20250620, end: 20250627

REACTIONS (4)
  - Pulmonary embolism [Recovering/Resolving]
  - Deep vein thrombosis [Recovering/Resolving]
  - Stasis dermatitis [Recovering/Resolving]
  - Cellulitis [Unknown]

NARRATIVE: CASE EVENT DATE: 20250602
